FAERS Safety Report 5103237-1 (Version None)
Quarter: 2006Q3

REPORT INFORMATION
  Report Type: 
  Country: None (occurrence: None)
  Receive Date: 20060908
  Receipt Date: 20060831
  Transmission Date: 20061208
  Serious: Yes (Hospitalization, Other)
  Sender: FDA-Public Use
  Company Number: 2006AL002620

PATIENT
  Sex: Male
  Weight: 28.1 kg

DRUGS (2)
  1. ACYCLOVIR [Suspect]
     Indication: ENCEPHALITIS
     Dosage: 500 MG QD PO
     Route: 048
     Dates: start: 20060528, end: 20060531
  2. CEFTRIAXONE [Concomitant]

REACTIONS (2)
  - RENAL IMPAIRMENT [None]
  - SUBDURAL EMPYEMA [None]
